FAERS Safety Report 6240601-1 (Version None)
Quarter: 2009Q2

REPORT INFORMATION
  Report Type: 
  Country: None (occurrence: None)
  Receive Date: 20090623
  Receipt Date: 20081022
  Transmission Date: 20091009
  Serious: No
  Sender: FDA-Public Use
  Company Number: US-ASTRAZENECA-2008UW23884

PATIENT
  Age: 75 Year
  Sex: Male
  Weight: 95.3 kg

DRUGS (2)
  1. PULMICORT RESPULES [Suspect]
     Indication: SINUSITIS
     Dosage: 0.5 MG/ML 2 AMPULES ONCE DAILY AT BEDTIME
     Route: 055
     Dates: start: 20081004
  2. LEVAQUIN [Concomitant]
     Dosage: 750 MG

REACTIONS (4)
  - DRUG INEFFECTIVE [None]
  - DYSPHONIA [None]
  - INCORRECT ROUTE OF DRUG ADMINISTRATION [None]
  - RHINORRHOEA [None]
